FAERS Safety Report 7583423-1 (Version None)
Quarter: 2011Q2

REPORT INFORMATION
  Report Type: 
  Country: None (occurrence: None)
  Receive Date: 20110630
  Receipt Date: 20110622
  Transmission Date: 20111010
  Serious: Yes (Hospitalization, Other)
  Sender: FDA-Public Use
  Company Number: US-BAXTER-2011BH016306

PATIENT
  Sex: Female

DRUGS (2)
  1. DIANEAL [Suspect]
     Route: 033
     Dates: start: 20110301
  2. DIANEAL [Suspect]
     Indication: PERITONEAL DIALYSIS
     Route: 033
     Dates: start: 20100201, end: 20100101

REACTIONS (4)
  - FUNGAL PERITONITIS [None]
  - POST PROCEDURAL COMPLICATION [None]
  - CHOLECYSTITIS INFECTIVE [None]
  - VOMITING [None]
